FAERS Safety Report 7745210 (Version 4)
Quarter: 2012Q4

REPORT INFORMATION
  Report Type: 
  Country: US (occurrence: US)
  Receive Date: 20101231
  Receipt Date: 20120913
  Transmission Date: 20130627
  Serious: Yes (Hospitalization, Other)
  Sender: FDA-Public Use
  Company Number: PHHY2010US84128

PATIENT
  Age: 80 None
  Sex: Male

DRUGS (16)
  1. GLEEVEC [Suspect]
     Indication: CHRONIC MYELOID LEUKAEMIA
     Dosage: 400 mg, QD
     Dates: start: 200106
  2. GLEEVEC [Suspect]
     Dosage: 100 mg, QID
     Route: 048
     Dates: start: 20080616
  3. GLEEVEC [Suspect]
     Dosage: 100 mg, TID
     Route: 048
     Dates: start: 20101206
  4. VALTURNA [Concomitant]
     Route: 048
  5. VITAMIN C [Concomitant]
     Dosage: 500 mg, daily
     Route: 048
  6. ASPIRIN [Concomitant]
     Dosage: 81 mg, daily
     Route: 048
  7. ZIAC [Concomitant]
     Dosage: 2.5/6.25 mg daily
     Route: 048
  8. OSTEO BI-FLEX [Concomitant]
     Route: 048
  9. PLAVIX [Concomitant]
     Route: 048
  10. FERROUS SULFATE [Concomitant]
     Dosage: 325 mg, UNK
     Route: 048
  11. MAGNESIUM OXIDE [Concomitant]
     Dosage: 250 mg, UNK
     Route: 048
  12. CARAFATE [Concomitant]
  13. NITROGLYCERIN [Concomitant]
  14. EPIPEN [Concomitant]
  15. HEPARIN [Concomitant]
     Route: 041
  16. RED BLOOD CELLS, CONCENTRATED [Concomitant]
     Dates: start: 20101018

REACTIONS (40)
  - Acute myocardial infarction [Unknown]
  - Mitral valve incompetence [Unknown]
  - Tricuspid valve incompetence [Unknown]
  - Heart rate decreased [Unknown]
  - Iron deficiency anaemia [Unknown]
  - Pallor [Unknown]
  - Haemoglobin decreased [Unknown]
  - Venous occlusion [Unknown]
  - Angina unstable [Unknown]
  - Troponin increased [Not Recovered/Not Resolved]
  - Chest pain [Unknown]
  - Sinus bradycardia [Unknown]
  - Ventricular fibrillation [Unknown]
  - Cardiomyopathy [Unknown]
  - Coronary artery disease [Unknown]
  - Aortic stenosis [Unknown]
  - Gastrointestinal haemorrhage [Unknown]
  - Renal failure chronic [Unknown]
  - Blood creatinine increased [Unknown]
  - Blood glucose increased [Unknown]
  - Blood urea increased [Unknown]
  - Bone marrow failure [Unknown]
  - Full blood count decreased [Unknown]
  - Anaemia macrocytic [Unknown]
  - Normochromic normocytic anaemia [Unknown]
  - Pulmonary arterial pressure increased [Unknown]
  - Device occlusion [Unknown]
  - Radiation proctopathy [Unknown]
  - Hiatus hernia [Unknown]
  - Gastrooesophageal reflux disease [Unknown]
  - Helicobacter infection [Unknown]
  - Gastric ulcer [Unknown]
  - Diverticulum [Unknown]
  - Duodenal ulcer [Unknown]
  - Periorbital oedema [Unknown]
  - Blood pressure inadequately controlled [Unknown]
  - Pruritus [Unknown]
  - Rash [Unknown]
  - Hypertension [Unknown]
  - Osteoarthritis [Unknown]
